APPROVED DRUG PRODUCT: METHYCLOTHIAZIDE
Active Ingredient: METHYCLOTHIAZIDE
Strength: 2.5MG
Dosage Form/Route: TABLET;ORAL
Application: A088750 | Product #001
Applicant: WATSON LABORATORIES INC
Approved: Sep 6, 1984 | RLD: No | RS: No | Type: DISCN